FAERS Safety Report 10149762 (Version 2)
Quarter: 2014Q2

REPORT INFORMATION
  Report Type: Spontaneous
  Country: JP (occurrence: JP)
  Receive Date: 20140502
  Receipt Date: 20140616
  Transmission Date: 20141212
  Serious: Yes (Other)
  Sender: FDA-Public Use
  Company Number: JP-ELI_LILLY_AND_COMPANY-JP201404008775

PATIENT
  Age: 35 Year
  Sex: Male

DRUGS (5)
  1. GEMCITABINE HYDROCHLORIDE [Suspect]
     Indication: PERITONEAL MESOTHELIOMA MALIGNANT
     Dosage: UNK, 9 CYCLES, INCOMBINATION WITH CISPLATIN
     Route: 042
  2. ALIMTA [Suspect]
     Indication: PERITONEAL MESOTHELIOMA MALIGNANT
     Dosage: UNK, 7 CYCLES, IN COMBINATION WITH CISPLATIN
     Route: 042
  3. CISPLATIN [Concomitant]
     Indication: PERITONEAL MESOTHELIOMA MALIGNANT
     Dosage: UNK, IN COMBINATION WITH GEMZAR AND PEMETREXED
     Route: 042
  4. FOLIC ACID [Concomitant]
     Indication: PROPHYLAXIS
     Dosage: UNK
     Route: 065
  5. VITAMIN B-12 [Concomitant]
     Indication: PROPHYLAXIS
     Dosage: UNK
     Route: 065

REACTIONS (4)
  - Renal impairment [Unknown]
  - Renal impairment [Unknown]
  - Malignant neoplasm progression [Unknown]
  - Off label use [Recovered/Resolved]
